FAERS Safety Report 21711779 (Version 5)
Quarter: 2024Q3

REPORT INFORMATION
  Report Type: Report from Study
  Country: IN (occurrence: IN)
  Receive Date: 20221212
  Receipt Date: 20240709
  Transmission Date: 20241017
  Serious: Yes (Other)
  Sender: ROCHE
  Company Number: IN-ROCHE-3235137

PATIENT
  Age: 67 Year
  Sex: Female

DRUGS (2)
  1. PHESGO [Suspect]
     Active Substance: HYALURONIDASE-ZZXF\PERTUZUMAB\TRASTUZUMAB
     Indication: Breast cancer metastatic
     Dosage: INTERVAL 21 DAYS
     Route: 058
     Dates: start: 20220622
  2. PHESGO [Suspect]
     Active Substance: HYALURONIDASE-ZZXF\PERTUZUMAB\TRASTUZUMAB
     Route: 058
     Dates: start: 20220622

REACTIONS (5)
  - Pneumonia [Unknown]
  - Metastases to central nervous system [Unknown]
  - Dyspnoea [Unknown]
  - Rales [Unknown]
  - Off label use [Unknown]
